FAERS Safety Report 6844284-9 (Version None)
Quarter: 2010Q3

REPORT INFORMATION
  Report Type: 
  Country: None (occurrence: None)
  Receive Date: 20100715
  Receipt Date: 20100706
  Transmission Date: 20110219
  Serious: Yes (Other)
  Sender: FDA-Public Use
  Company Number: US-PFIZER INC-2010084895

PATIENT
  Sex: Female
  Weight: 66 kg

DRUGS (4)
  1. CADUET [Suspect]
     Indication: BLOOD PRESSURE INADEQUATELY CONTROLLED
     Dosage: [AMLODIPINE 5MG]/[ATORVASTATIN 40 MG], DAILY
     Route: 048
     Dates: start: 20100101
  2. GLIPIZIDE [Concomitant]
     Dosage: 2.5 MG, UNK
  3. LIPITOR [Concomitant]
     Dosage: 40 MG, UNK
  4. LEXAPRO [Concomitant]
     Indication: EMOTIONAL DISORDER
     Dosage: UNK

REACTIONS (2)
  - BLOOD PRESSURE INCREASED [None]
  - DRUG INEFFECTIVE [None]
